FAERS Safety Report 12636724 (Version 1)
Quarter: 2016Q3

REPORT INFORMATION
  Report Type: Spontaneous
  Country: GB (occurrence: GB)
  Receive Date: 20160809
  Receipt Date: 20160809
  Transmission Date: 20161109
  Serious: Yes (Other)
  Sender: FDA-Public Use
  Company Number: GB-ACCORD-042912

PATIENT
  Age: 5 Decade
  Sex: Male
  Weight: 72.4 kg

DRUGS (7)
  1. DEXAMETHASONE. [Concomitant]
     Active Substance: DEXAMETHASONE
  2. GRANISETRON/GRANISETRON HYDROCHLORIDE [Concomitant]
  3. FLUOROURACIL. [Concomitant]
     Active Substance: FLUOROURACIL
  4. IRINOTECAN [Suspect]
     Active Substance: IRINOTECAN
     Route: 042
     Dates: start: 20160718, end: 20160718
  5. IBUPROFEN. [Concomitant]
     Active Substance: IBUPROFEN
  6. ASTRA PHARMS OMEPRAZOLE [Concomitant]
  7. OXALIPLATIN. [Concomitant]
     Active Substance: OXALIPLATIN

REACTIONS (4)
  - Dyspnoea [Recovered/Resolved]
  - Dysphonia [Recovered/Resolved]
  - Aphonia [Recovered/Resolved]
  - Throat tightness [Recovered/Resolved]

NARRATIVE: CASE EVENT DATE: 20160718
